FAERS Safety Report 5957441-0 (Version None)
Quarter: 2008Q4

REPORT INFORMATION
  Report Type: 
  Country: None (occurrence: None)
  Receive Date: 20081107
  Receipt Date: 20081028
  Transmission Date: 20090506
  Serious: Yes (Hospitalization)
  Sender: FDA-Public Use
  Company Number: WAES 0810USA05391

PATIENT
  Age: 47 Year
  Sex: Male

DRUGS (2)
  1. ZETIA [Suspect]
     Indication: TYPE IIA HYPERLIPIDAEMIA
     Dosage: 10MG, DAILY; PO
     Route: 048
     Dates: start: 20080418, end: 20080717
  2. ROSUVASTATIN CALCIUM [Concomitant]

REACTIONS (2)
  - CHOLELITHIASIS [None]
  - HEPATIC FUNCTION ABNORMAL [None]
